FAERS Safety Report 20710731 (Version 1)
Quarter: 2022Q2

REPORT INFORMATION
  Report Type: Spontaneous
  Country: US (occurrence: US)
  Receive Date: 20220414
  Receipt Date: 20220414
  Transmission Date: 20220721
  Serious: Yes (Other)
  Sender: FDA-Public Use
  Company Number: US-Amarin Pharma, Inc.-2022AMR000150

PATIENT
  Age: 77 Year
  Sex: Female
  Weight: 64.922 kg

DRUGS (5)
  1. VASCEPA [Suspect]
     Active Substance: ICOSAPENT ETHYL
     Indication: Blood cholesterol increased
     Route: 048
  2. PANTOPRAZOLE [Concomitant]
     Active Substance: PANTOPRAZOLE
     Indication: Product used for unknown indication
     Dates: start: 2018
  3. HYDROCHLOROTHIAZIDE [Concomitant]
     Active Substance: HYDROCHLOROTHIAZIDE
     Indication: Product used for unknown indication
     Dates: start: 2020
  4. FLUVASTATIN [Concomitant]
     Active Substance: FLUVASTATIN SODIUM
     Indication: Product used for unknown indication
     Dates: start: 2019
  5. FAMOTIDINE [Concomitant]
     Active Substance: FAMOTIDINE
     Indication: Product used for unknown indication
     Dates: start: 2018, end: 202203

REACTIONS (10)
  - Knee arthroplasty [Recovered/Resolved]
  - Cerebrovascular accident [Recovered/Resolved]
  - Thrombosis [Unknown]
  - Arteriosclerosis [Unknown]
  - Eye disorder [Unknown]
  - Cataract [Recovered/Resolved]
  - Limb asymmetry [Not Recovered/Not Resolved]
  - Arthropathy [Not Recovered/Not Resolved]
  - Off label use [Not Recovered/Not Resolved]
  - Prescribed underdose [Not Recovered/Not Resolved]

NARRATIVE: CASE EVENT DATE: 20100101
